FAERS Safety Report 14363581 (Version 4)
Quarter: 2019Q1

REPORT INFORMATION
  Report Type: Report from Study
  Country: None (occurrence: US)
  Receive Date: 20180108
  Receipt Date: 20190130
  Transmission Date: 20190417
  Serious: Yes (Hospitalization, Other)
  Sender: FDA-Public Use
  Company Number: US-ABBVIE-17K-163-2125344-00

PATIENT
  Age: 67 Year
  Sex: Female
  Weight: 69.01 kg

DRUGS (7)
  1. VITAMIN D [Concomitant]
     Active Substance: CHOLECALCIFEROL
     Indication: PRODUCT USED FOR UNKNOWN INDICATION
  2. ARAVA [Concomitant]
     Active Substance: LEFLUNOMIDE
     Indication: RHEUMATOID ARTHRITIS
  3. HUMIRA [Suspect]
     Active Substance: ADALIMUMAB
     Indication: RHEUMATOID ARTHRITIS
     Route: 058
     Dates: start: 200610, end: 201802
  4. VITAMIN B12 [Concomitant]
     Active Substance: CYANOCOBALAMIN
     Indication: VITAMIN SUPPLEMENTATION
  5. HUMIRA [Suspect]
     Active Substance: ADALIMUMAB
     Route: 058
     Dates: start: 201803
  6. FOLIC ACID. [Concomitant]
     Active Substance: FOLIC ACID
     Indication: VITAMIN SUPPLEMENTATION
  7. PREDNISONE. [Concomitant]
     Active Substance: PREDNISONE
     Indication: RHEUMATOID ARTHRITIS

REACTIONS (14)
  - Device loosening [Recovering/Resolving]
  - Pain in extremity [Unknown]
  - Arthropathy [Unknown]
  - Synovial cyst [Recovering/Resolving]
  - Swelling [Unknown]
  - Cartilage atrophy [Recovered/Resolved]
  - Gait disturbance [Recovered/Resolved]
  - Herpes zoster [Recovered/Resolved]
  - Musculoskeletal disorder [Unknown]
  - Ligament sprain [Unknown]
  - Condition aggravated [Unknown]
  - Herpes zoster [Recovered/Resolved]
  - Ligament disorder [Unknown]
  - Stress [Unknown]

NARRATIVE: CASE EVENT DATE: 2010
